FAERS Safety Report 25768070 (Version 1)
Quarter: 2025Q3

REPORT INFORMATION
  Report Type: Spontaneous
  Country: CN (occurrence: CN)
  Receive Date: 20250905
  Receipt Date: 20250905
  Transmission Date: 20251021
  Serious: Yes (Hospitalization)
  Sender: MERCK SHARP & DOHME LLC
  Company Number: CN-BAYER-2025A115359

PATIENT
  Age: 56 Year
  Sex: Male
  Weight: 75 kg

DRUGS (2)
  1. VERQUVO [Suspect]
     Active Substance: VERICIGUAT
     Indication: Cardiac failure chronic
     Dosage: 2.5 MG, QD
     Route: 048
     Dates: start: 20250629, end: 20250717
  2. CLINDAMYCIN PALMITATE HYDROCHLORIDE [Suspect]
     Active Substance: CLINDAMYCIN PALMITATE HYDROCHLORIDE
     Indication: Anti-infective therapy
     Route: 048
     Dates: start: 20250703, end: 20250717

REACTIONS (6)
  - Abdominal pain upper [Unknown]
  - Carbohydrate antigen 125 increased [Unknown]
  - Respiratory rate increased [Unknown]
  - Drug-induced liver injury [Unknown]
  - Neurone-specific enolase increased [Unknown]
  - Electrolyte imbalance [Unknown]

NARRATIVE: CASE EVENT DATE: 20250710
